FAERS Safety Report 15603596 (Version 3)
Quarter: 2019Q1

REPORT INFORMATION
  Report Type: Report from Study
  Country: GB (occurrence: GB)
  Receive Date: 20181109
  Receipt Date: 20190202
  Transmission Date: 20190417
  Serious: Yes (Death)
  Sender: FDA-Public Use
  Company Number: PHHY2018GB150963

PATIENT

DRUGS (1)
  1. ENTRESTO [Suspect]
     Active Substance: SACUBITRIL\VALSARTAN
     Indication: PRODUCT USED FOR UNKNOWN INDICATION
     Dosage: 1 DF(97 MG SACUBITRIL/ 103 MG VALSARTAN), BID
     Route: 065
     Dates: start: 20170515

REACTIONS (2)
  - Pulmonary oedema [Fatal]
  - Pneumonia [Fatal]
